FAERS Safety Report 9504831 (Version 1)
Quarter: 2013Q3

REPORT INFORMATION
  Report Type: Spontaneous
  Country: JP (occurrence: JP)
  Receive Date: 20130906
  Receipt Date: 20130906
  Transmission Date: 20140515
  Serious: Yes (Death, Other)
  Sender: FDA-Public Use
  Company Number: PHHY2013JP097071

PATIENT
  Age: 14 Year
  Sex: Female

DRUGS (21)
  1. ETOPOSIDE [Suspect]
     Indication: ACUTE MYELOID LEUKAEMIA
     Dosage: 150 MG/M2, UNK
  2. ETOPOSIDE [Suspect]
     Dosage: 100 MG/M2, UNK
  3. ETOPOSIDE [Suspect]
     Dosage: 100 MG/M2, UNK
  4. CYTARABINE [Suspect]
     Indication: ACUTE MYELOID LEUKAEMIA
     Dosage: 200 MG/M2, UNK
  5. CYTARABINE [Suspect]
     Dosage: 3 G/M2
  6. CYTARABINE [Suspect]
     Dosage: 2 G/M2
  7. CYTARABINE [Suspect]
     Dosage: 3 G/M2
  8. CYTARABINE [Suspect]
     Dosage: 2 G/M2
  9. MITOXANTRONE [Suspect]
     Indication: ACUTE MYELOID LEUKAEMIA
     Dosage: 5 MG/M2, UNK
  10. MITOXANTRONE [Suspect]
     Dosage: 5 MG/M2, UNK
  11. MITOXANTRONE [Suspect]
     Dosage: 5 MG/M2, UNK
  12. IDARUBICIN [Suspect]
     Indication: ACUTE MYELOID LEUKAEMIA
     Dosage: 10 MG/M2, UNK
  13. IDARUBICIN [Suspect]
     Dosage: 10 MG/M2, UNK
  14. THROMBOMODULIN ALFA [Concomitant]
     Indication: DISSEMINATED INTRAVASCULAR COAGULATION
  15. FLUDARABINE [Concomitant]
     Dosage: 180 MG/M2, UNK
  16. MELPHALAN [Concomitant]
     Dosage: 210 MG/M2, UNK
  17. THYMOGLOBULIN [Concomitant]
     Dosage: 5 MG/KG, UNK
  18. METHOTREXATE [Concomitant]
  19. TACROLIMUS [Concomitant]
  20. METHYLPREDNISOLONE [Concomitant]
  21. GEMTUZUMAB [Concomitant]

REACTIONS (8)
  - Acute myeloid leukaemia recurrent [Fatal]
  - Cardiomegaly [Unknown]
  - Circulatory collapse [Unknown]
  - Tumour lysis syndrome [Unknown]
  - Bone marrow failure [Recovering/Resolving]
  - Febrile neutropenia [Recovering/Resolving]
  - Pyrexia [Unknown]
  - White blood cell count decreased [Unknown]
